FAERS Safety Report 9359789 (Version 2)
Quarter: 2013Q3

REPORT INFORMATION
  Report Type: Spontaneous
  Country: DK (occurrence: DK)
  Receive Date: 20130621
  Receipt Date: 20130705
  Transmission Date: 20140515
  Serious: Yes (Death, Other)
  Sender: FDA-Public Use
  Company Number: DK-AMGEN-DNKSP2013041261

PATIENT
  Age: 73 Year
  Sex: 0
  Weight: 80 kg

DRUGS (11)
  1. XGEVA [Suspect]
     Indication: PROSTATE CANCER
     Dosage: 120 MG,  UNK
     Dates: start: 20111114, end: 20130208
  2. XGEVA [Suspect]
     Indication: METASTASES TO BONE
  3. ZOMETA [Suspect]
     Indication: PROSTATE CANCER
     Dosage: 4 MG/5ML
     Dates: start: 20090107, end: 20120529
  4. ZOMETA [Suspect]
     Indication: METASTASES TO BONE
  5. GABAPENTIN AAA [Concomitant]
     Indication: PAIN
     Dosage: 1200 MG, QD
     Dates: start: 20110629
  6. CONTALGIN [Concomitant]
     Indication: PAIN
     Dosage: 20 MG X 2
     Dates: start: 20070623
  7. FLUOXETIN [Concomitant]
     Indication: DEPRESSION
     Dosage: 20 MG X 1
     Dates: start: 20061012
  8. CALCIUM +D3 [Concomitant]
     Indication: PROPHYLAXIS
     Dosage: UNK
     Dates: start: 200610
  9. CENTYL MED KALIUMKLORID [Concomitant]
     Indication: HYPERTENSION
  10. PREDNISOLONE [Concomitant]
     Indication: ASTHMA
     Dosage: 12.5 MG, QD
     Dates: start: 20061009
  11. FLUCONAZOL [Concomitant]
     Indication: FUNGAL INFECTION
     Dosage: 10 MG, QD
     Dates: start: 20120111

REACTIONS (10)
  - Prostate cancer [Fatal]
  - Gingival swelling [Not Recovered/Not Resolved]
  - Pain in jaw [Not Recovered/Not Resolved]
  - Hypoaesthesia oral [Not Recovered/Not Resolved]
  - Erythema [Unknown]
  - Local swelling [Unknown]
  - Osteonecrosis of jaw [Not Recovered/Not Resolved]
  - Hypoaesthesia [Unknown]
  - Oral disorder [Unknown]
  - Dyspnoea [Unknown]
